FAERS Safety Report 13271149 (Version 1)
Quarter: 2017Q1

REPORT INFORMATION
  Report Type: Spontaneous
  Country: DK (occurrence: DK)
  Receive Date: 20170226
  Receipt Date: 20170226
  Transmission Date: 20170428
  Serious: Yes (Hospitalization, Other)
  Sender: FDA-Public Use
  Company Number: DK-MYLANLABS-2017M1010885

PATIENT

DRUGS (2)
  1. ORFIRIL [Suspect]
     Active Substance: VALPROIC ACID
     Indication: EPILEPSY
     Dates: start: 20160630, end: 20160706
  2. GABAMED [Suspect]
     Active Substance: GABAPENTIN
     Dosage: DOSIS: 2 KAPSLER TIL NATTEN.STYRKE: 300 MG.
     Route: 048
     Dates: start: 20160629, end: 20160629

REACTIONS (17)
  - Physical disability [Not Recovered/Not Resolved]
  - Musculoskeletal stiffness [Unknown]
  - Chest pain [Recovered/Resolved]
  - Cyanosis [Recovered/Resolved]
  - Respiratory arrest [Recovered/Resolved]
  - Seizure [None]
  - Mental impairment [Not Recovered/Not Resolved]
  - Fatigue [Unknown]
  - Somnolence [Unknown]
  - Brain injury [Not Recovered/Not Resolved]
  - Cognitive disorder [Not Recovered/Not Resolved]
  - Pyrexia [Recovered/Resolved]
  - Muscle spasms [Recovered/Resolved]
  - Cardiac arrest [Recovered/Resolved]
  - Gait disturbance [Not Recovered/Not Resolved]
  - Palpitations [Recovered/Resolved]
  - Toxicity to various agents [Recovered/Resolved with Sequelae]

NARRATIVE: CASE EVENT DATE: 20160630
